FAERS Safety Report 16833905 (Version 2)
Quarter: 2021Q2

REPORT INFORMATION
  Report Type: Report from Study
  Country: GB (occurrence: GB)
  Receive Date: 20190920
  Receipt Date: 20210505
  Transmission Date: 20210716
  Serious: Yes (Life-Threatening, Hospitalization)
  Sender: FDA-Public Use
  Company Number: GB-JNJFOC-20190919975

PATIENT
  Age: 56 Year
  Sex: Male
  Weight: 76.3 kg

DRUGS (8)
  1. DARATUMUMAB [Suspect]
     Active Substance: DARATUMUMAB
     Indication: PLASMA CELL MYELOMA
     Dosage: DAY 1 EACH CYCLE,?MOST RECENT DOSE 02?APR?2019
     Route: 042
     Dates: start: 20190128
  2. DEXAMETHASONE. [Suspect]
     Active Substance: DEXAMETHASONE
     Indication: PLASMA CELL MYELOMA
     Dosage: MOST RECENT DOS OF ADMINISTRATION ON 12?JUL?2019?DAY 1,8, 11, 15
     Route: 048
     Dates: start: 20190128
  3. CYCLOPHOSPHAMIDE. [Suspect]
     Active Substance: CYCLOPHOSPHAMIDE
     Indication: PLASMA CELL MYELOMA
     Dosage: MOST RECENT DOSE OF ADMINISTRATION 09?APR?2019?DAY 1, 8 OF EACH CYCLE
     Route: 048
     Dates: start: 20190128
  4. FILGRASTIM [Suspect]
     Active Substance: FILGRASTIM
     Indication: PLASMA CELL MYELOMA
     Dosage: MOST RECENT DOSE OF ADMINISTRATION ON 28?AUG?2019?ONCE POST HSCT
     Route: 058
     Dates: start: 20190115
  5. CYCLOPHOSPHAMIDE. [Suspect]
     Active Substance: CYCLOPHOSPHAMIDE
     Indication: PLASMA CELL MYELOMA
     Dosage: MOST RECENT DOSE OF ADMINISTERED ON 14?MAY?2019?ONCE PRE?STEM CELL TRANSPLANTATION
     Route: 042
     Dates: start: 20190514
  6. LENALIDOMIDE [Suspect]
     Active Substance: LENALIDOMIDE
     Indication: PLASMA CELL MYELOMA
     Dosage: MOST RECENT DOSE ADMINISTERED ON 12?JUL?2019.?DAY 1?14 EACH CYCLE
     Route: 048
     Dates: start: 20190128
  7. BORTEZOMIB. [Suspect]
     Active Substance: BORTEZOMIB
     Indication: PLASMA CELL MYELOMA
     Dosage: DAY 1 AND 11 OF EACH CYCLE ?MOST RECENT DOSE ADMINISTERED ON 23?AUG?2019
     Route: 058
     Dates: start: 20190128
  8. MELPHALAN. [Suspect]
     Active Substance: MELPHALAN
     Indication: PLASMA CELL MYELOMA
     Dosage: MOST RECENT DOSE ON 08?AUG?2019?PRE?TRANSPLANT DAY?1
     Route: 042
     Dates: start: 20190808

REACTIONS (2)
  - Delayed engraftment [Recovered/Resolved]
  - Respiratory tract infection fungal [Recovered/Resolved]

NARRATIVE: CASE EVENT DATE: 20190815
